FAERS Safety Report 9153407 (Version 1)
Quarter: 2013Q1

REPORT INFORMATION
  Report Type: Spontaneous
  Country: US (occurrence: US)
  Receive Date: 20130311
  Receipt Date: 20130311
  Transmission Date: 20140127
  Serious: Yes (Death, Disabling, Other)
  Sender: FDA-Public Use
  Company Number: US-PAR PHARMACEUTICAL, INC-2013SCPR005796

PATIENT
  Sex: 0

DRUGS (2)
  1. METOCLOPRAMIDE [Suspect]
     Indication: ABDOMINAL DISTENSION
     Dosage: UNK, UNKNOWN
     Route: 065
  2. METOCLOPRAMIDE [Suspect]
     Indication: DYSPEPSIA

REACTIONS (10)
  - Death [Fatal]
  - Nervous system disorder [Unknown]
  - Disability [Unknown]
  - Injury [Unknown]
  - Activities of daily living impaired [Unknown]
  - Emotional distress [Unknown]
  - Pain [Unknown]
  - Tardive dyskinesia [Unknown]
  - Extrapyramidal disorder [Unknown]
  - Anxiety [Unknown]
